FAERS Safety Report 7967263-7 (Version None)
Quarter: 2011Q4

REPORT INFORMATION
  Report Type: 
  Country: None (occurrence: None)
  Receive Date: 20111209
  Receipt Date: 20111125
  Transmission Date: 20120403
  Serious: Yes (Other)
  Sender: FDA-Public Use
  Company Number: DE-UCBSA-046838

PATIENT

DRUGS (1)
  1. LEVETIRACETAM [Suspect]
     Dates: start: 20080101

REACTIONS (1)
  - THROMBOCYTOPENIA [None]
